FAERS Safety Report 12252434 (Version 1)
Quarter: 2016Q2

REPORT INFORMATION
  Report Type: Spontaneous
  Country: US (occurrence: None)
  Receive Date: 20160408
  Receipt Date: 20160408
  Transmission Date: 20160815
  Serious: Yes (Other)
  Sender: FDA-Public Use
  Company Number: None

PATIENT
  Age: 88 Year
  Sex: Female
  Weight: 90.72 kg

DRUGS (10)
  1. PRAMIPEXOLE 0.25MG TAB, 0.25 MG [Suspect]
     Active Substance: PRAMIPEXOLE
     Indication: RESTLESS LEGS SYNDROME
     Route: 048
     Dates: start: 20160323, end: 20160328
  2. ATENOLOL. [Concomitant]
     Active Substance: ATENOLOL
  3. FUROSEMIDE. [Concomitant]
     Active Substance: FUROSEMIDE
  4. ATORVASTATIN [Concomitant]
     Active Substance: ATORVASTATIN
  5. PRAMIPEXOLE TAB 0.5MG, 0.5 MG [Suspect]
     Active Substance: PRAMIPEXOLE
     Route: 048
     Dates: start: 20160323, end: 20160328
  6. METAMUCIL [Concomitant]
     Active Substance: PLANTAGO SEED
  7. VITAMIN B12 [Concomitant]
     Active Substance: CYANOCOBALAMIN
  8. POTASSIUM CHLORIDE. [Concomitant]
     Active Substance: POTASSIUM CHLORIDE
  9. BIOTIN [Concomitant]
     Active Substance: BIOTIN
  10. PRAMIPEXOLE. [Concomitant]
     Active Substance: PRAMIPEXOLE

REACTIONS (5)
  - Restless legs syndrome [None]
  - Condition aggravated [None]
  - Muscle spasms [None]
  - Gait disturbance [None]
  - Product quality issue [None]

NARRATIVE: CASE EVENT DATE: 20160323
